FAERS Safety Report 17064509 (Version 2)
Quarter: 2019Q4

REPORT INFORMATION
  Report Type: Report from Study
  Country: None (occurrence: US)
  Receive Date: 20191122
  Receipt Date: 20191212
  Transmission Date: 20200122
  Serious: Yes (Hospitalization, Other)
  Sender: FDA-Public Use
  Company Number: US-ABBVIE-19K-163-3006046-00

PATIENT
  Age: 29 Year
  Sex: Female
  Weight: 104.42 kg

DRUGS (2)
  1. HUMIRA [Suspect]
     Active Substance: ADALIMUMAB
     Route: 058
     Dates: start: 201912
  2. HUMIRA [Suspect]
     Active Substance: ADALIMUMAB
     Indication: PSORIASIS
     Route: 058
     Dates: start: 2017, end: 2018

REACTIONS (12)
  - Back pain [Recovering/Resolving]
  - Pulmonary thrombosis [Recovering/Resolving]
  - Headache [Not Recovered/Not Resolved]
  - Ear pain [Not Recovered/Not Resolved]
  - Abortion spontaneous [Unknown]
  - Psoriasis [Not Recovered/Not Resolved]
  - Dyspnoea [Recovering/Resolving]
  - Maternal exposure during pregnancy [Unknown]
  - Chest pain [Recovering/Resolving]
  - Circumstance or information capable of leading to medication error [Unknown]
  - Therapeutic product effect incomplete [Not Recovered/Not Resolved]
  - Pain in extremity [Recovering/Resolving]

NARRATIVE: CASE EVENT DATE: 201904
